FAERS Safety Report 5893230-3 (Version None)
Quarter: 2008Q3

REPORT INFORMATION
  Report Type: 
  Country: None (occurrence: None)
  Receive Date: 20080923
  Receipt Date: 20080919
  Transmission Date: 20090109
  Serious: Yes (Other)
  Sender: FDA-Public Use
  Company Number: A0748108A

PATIENT
  Age: 57 Year
  Sex: Female

DRUGS (3)
  1. ALLI [Suspect]
     Dates: end: 20080912
  2. ANTIBIOTICS [Concomitant]
  3. ANTACID TAB [Concomitant]

REACTIONS (19)
  - ABDOMINAL PAIN UPPER [None]
  - ASTHENIA [None]
  - CHANGE OF BOWEL HABIT [None]
  - CONSTIPATION [None]
  - DYSPEPSIA [None]
  - DYSPHAGIA [None]
  - GAIT DISTURBANCE [None]
  - HEPATIC ENZYME INCREASED [None]
  - HYPERCHLORHYDRIA [None]
  - INTESTINAL OBSTRUCTION [None]
  - MALAISE [None]
  - MUCOUS STOOLS [None]
  - MUSCLE SPASMS [None]
  - NAUSEA [None]
  - OESOPHAGEAL OBSTRUCTION [None]
  - OESOPHAGEAL PAIN [None]
  - POOR QUALITY SLEEP [None]
  - RECTAL DISCHARGE [None]
  - SOMNOLENCE [None]
